FAERS Safety Report 11171500 (Version 4)
Quarter: 2015Q4

REPORT INFORMATION
  Report Type: Spontaneous
  Country: CO (occurrence: CO)
  Receive Date: 20150608
  Receipt Date: 20151027
  Transmission Date: 20160304
  Serious: Yes (Life-Threatening, Hospitalization)
  Sender: FDA-Public Use
  Company Number: CO-GE HEALTHCARE MEDICAL DIAGNOSTICS-OMPQ-PR-1503S-0227

PATIENT
  Sex: Female
  Weight: 58.11 kg

DRUGS (2)
  1. OMNIPAQUE [Suspect]
     Active Substance: IOHEXOL
     Indication: SPLENIC INJURY
     Route: 042
     Dates: start: 20150302, end: 20150302
  2. OMNIPAQUE [Suspect]
     Active Substance: IOHEXOL
     Indication: DIAGNOSTIC PROCEDURE

REACTIONS (5)
  - Anaphylactic shock [Unknown]
  - Asthenia [Unknown]
  - Ascites [Unknown]
  - Pleural disorder [Unknown]
  - Oropharyngeal pain [Unknown]

NARRATIVE: CASE EVENT DATE: 20150302
